FAERS Safety Report 20631310 (Version 2)
Quarter: 2022Q2

REPORT INFORMATION
  Report Type: Spontaneous
  Country: ES (occurrence: ES)
  Receive Date: 20220324
  Receipt Date: 20220602
  Transmission Date: 20220721
  Serious: Yes (Other)
  Sender: FDA-Public Use
  Company Number: None

PATIENT
  Age: 58 Year
  Sex: Female
  Weight: 53 kg

DRUGS (2)
  1. GLECAPREVIR\PIBRENTASVIR [Suspect]
     Active Substance: GLECAPREVIR\PIBRENTASVIR
     Indication: Hepatitis C
     Dosage: 3 COMPR /DIA ?100 MG/40 MG COMPRIMIDOS RECUBIERTOS CON PELICULA, 84 COMPRIMIDOS
     Route: 048
     Dates: start: 20220212, end: 20220307
  2. EPCLUSA [Suspect]
     Active Substance: SOFOSBUVIR\VELPATASVIR
     Indication: Hepatitis C
     Dosage: 1 COMPRIMIDO ?400 MG/100 MG COMPRIMIDOS RECUBIERTOS CON PELICULA, 28 COMPRIMIDOS
     Route: 048
     Dates: start: 20211220, end: 20220119

REACTIONS (6)
  - Face oedema [Recovered/Resolved]
  - Oedema [Recovered/Resolved]
  - Hemiparesis [Recovered/Resolved]
  - Headache [Recovered/Resolved]
  - Fatigue [Recovered/Resolved]
  - Nausea [Recovered/Resolved]

NARRATIVE: CASE EVENT DATE: 20220213
